FAERS Safety Report 20632189 (Version 4)
Quarter: 2022Q2

REPORT INFORMATION
  Report Type: Report from Study
  Country: AR (occurrence: AR)
  Receive Date: 20220324
  Receipt Date: 20220412
  Transmission Date: 20220721
  Serious: Yes (Other)
  Sender: FDA-Public Use
  Company Number: AR-NOVARTISPH-NVSC2020AR281785

PATIENT
  Age: 12 Year
  Sex: Female

DRUGS (8)
  1. OMNITROPE [Suspect]
     Active Substance: SOMATROPIN
     Indication: Growth hormone deficiency
     Dosage: 0.9 MG, QD
     Route: 058
     Dates: start: 20201002
  2. OMNITROPE [Suspect]
     Active Substance: SOMATROPIN
     Dosage: 7.4 MG, QW
     Route: 058
     Dates: start: 20201002
  3. OMNITROPE [Suspect]
     Active Substance: SOMATROPIN
     Dosage: 0.7 MG, QD
     Route: 058
  4. OMNITROPE [Suspect]
     Active Substance: SOMATROPIN
     Dosage: 1.05 MG, QD
     Route: 065
  5. OMNITROPE [Suspect]
     Active Substance: SOMATROPIN
     Dosage: 1.1 MG (4 DAYS)
     Route: 065
  6. OMNITROPE [Suspect]
     Active Substance: SOMATROPIN
     Dosage: 1 MG (3 DAYS)
     Route: 065
  7. OMNITROPE [Suspect]
     Active Substance: SOMATROPIN
     Dosage: 0.5 MG, QW
     Route: 065
     Dates: start: 20211021
  8. OMNITROPE [Suspect]
     Active Substance: SOMATROPIN
     Dosage: 1.1 MG, QD
     Route: 058

REACTIONS (7)
  - Growth retardation [Not Recovered/Not Resolved]
  - Drug ineffective [Unknown]
  - Weight gain poor [Unknown]
  - Somnolence [Unknown]
  - Fatigue [Unknown]
  - Incorrect dose administered [Unknown]
  - Product dose omission issue [Unknown]

NARRATIVE: CASE EVENT DATE: 20201013
